FAERS Safety Report 14721624 (Version 2)
Quarter: 2018Q2

REPORT INFORMATION
  Report Type: Spontaneous
  Country: US (occurrence: US)
  Receive Date: 20180405
  Receipt Date: 20180601
  Transmission Date: 20180711
  Serious: No
  Sender: FDA-Public Use
  Company Number: US-GLAXOSMITHKLINE-US2018056983

PATIENT
  Sex: Female

DRUGS (1)
  1. ANORO ELLIPTA [Suspect]
     Active Substance: UMECLIDINIUM BROMIDE\VILANTEROL TRIFENATATE

REACTIONS (6)
  - Product quality issue [Unknown]
  - Throat irritation [Recovered/Resolved]
  - Accidental exposure to product [Unknown]
  - Exposure via direct contact [Unknown]
  - Exposure via skin contact [Unknown]
  - Eye irritation [Recovered/Resolved]
